FAERS Safety Report 8637739 (Version 4)
Quarter: 2013Q3

REPORT INFORMATION
  Report Type: Spontaneous
  Country: US (occurrence: US)
  Receive Date: 20120627
  Receipt Date: 20130822
  Transmission Date: 20140515
  Serious: Yes (Life-Threatening, Hospitalization)
  Sender: FDA-Public Use
  Company Number: US-BAYER-2012-062292

PATIENT
  Age: 49 Year
  Sex: Female
  Weight: 79.37 kg

DRUGS (29)
  1. YASMIN [Suspect]
     Indication: CONTRACEPTION
     Dosage: UNK
     Dates: start: 2003, end: 2010
  2. YASMIN [Suspect]
     Indication: MENSTRUAL CYCLE MANAGEMENT
  3. YASMIN [Suspect]
     Indication: HORMONE REPLACEMENT THERAPY
  4. YASMIN [Suspect]
     Indication: ACNE
  5. YASMIN [Suspect]
     Indication: PREMENSTRUAL SYNDROME
  6. OCELLA [Suspect]
     Indication: ACNE
     Dosage: UNK
     Dates: start: 2003, end: 2010
  7. OCELLA [Suspect]
     Indication: PREMENSTRUAL SYNDROME
  8. ALBUTEROL [Concomitant]
  9. LYRICA [Concomitant]
     Dosage: 100 MG, QID
     Route: 048
  10. SKELAXIN [Concomitant]
     Dosage: 800 MG, QID
     Route: 048
  11. BUMETANIDE [Concomitant]
     Dosage: 2 MG, BID
     Route: 048
  12. PRANDIN [Concomitant]
     Dosage: 1 MG, TID
  13. BETAMETHASONE [Concomitant]
     Dosage: UNK UNK, BID
     Route: 061
  14. LORAZEPAM [Concomitant]
     Dosage: 1 MG, QID
  15. NEXIUM [Concomitant]
  16. EXFORGE [Concomitant]
     Dosage: DAILY
     Route: 048
  17. SUMATRIPTAN [Concomitant]
  18. TRAZODONE [Concomitant]
     Dosage: 100 MG, PRN BEDTIME
     Route: 048
  19. PROPOXYPHENE [Concomitant]
     Dosage: 650 MG, UNK
     Route: 048
  20. PREDNISONE [Concomitant]
     Dosage: 5 MG, UNK
     Route: 048
  21. BUMEX [Concomitant]
     Indication: OEDEMA
  22. NORCO [Concomitant]
  23. SYMBYAX [Concomitant]
     Indication: DEPRESSION
  24. DRUGS FOR OBSTRUCTIVE AIRWAY DISEASES [Concomitant]
  25. INSULIN [Concomitant]
     Indication: BLOOD GLUCOSE INCREASED
  26. ADVIL [Concomitant]
  27. IMITREX [Concomitant]
  28. VICTOZA [Concomitant]
  29. BYETTA [Concomitant]

REACTIONS (7)
  - Pulmonary embolism [None]
  - Cerebral infarction [None]
  - Thrombotic stroke [None]
  - Injury [None]
  - Pain [None]
  - Pain [None]
  - Dyspnoea [None]
